FAERS Safety Report 18224176 (Version 1)
Quarter: 2020Q3

REPORT INFORMATION
  Report Type: Spontaneous
  Country: US (occurrence: US)
  Receive Date: 20200902
  Receipt Date: 20200902
  Transmission Date: 20201103
  Serious: Yes (Hospitalization)
  Sender: FDA-Public Use
  Company Number: US-FRESENIUS KABI-FK202008958

PATIENT
  Age: 33 Year
  Sex: Female

DRUGS (3)
  1. DILAUDID [Suspect]
     Active Substance: HYDROMORPHONE HYDROCHLORIDE
     Indication: PRODUCT USED FOR UNKNOWN INDICATION
     Dosage: UNKNOWN
     Route: 065
  2. LETROZOLE. [Concomitant]
     Active Substance: LETROZOLE
     Indication: BREAST CANCER
     Dosage: UNKNOWN; THE MOST RECENT DOSE BEFORE THE EVENT FOR LETROZOLE WAS 2.5MG, ONCE DAILY ON 27JUL2018.
     Route: 048
     Dates: start: 20180403
  3. PALBOCICLIB [Suspect]
     Active Substance: PALBOCICLIB
     Indication: BREAST CANCER
     Dosage: 100 MG; THE MOST RECENT DOSE BEFORE THE EVENT FOR PALBOCICLIB WAS 100 MG, ONCE DAILY (QD) ON 27JUL20
     Route: 048
     Dates: start: 20180403

REACTIONS (2)
  - Chest pain [Recovered/Resolved]
  - Back pain [Recovered/Resolved]

NARRATIVE: CASE EVENT DATE: 20180728
